FAERS Safety Report 16234396 (Version 1)
Quarter: 2019Q2

REPORT INFORMATION
  Report Type: Spontaneous
  Country: US (occurrence: US)
  Receive Date: 20190424
  Receipt Date: 20190424
  Transmission Date: 20190711
  Serious: No
  Sender: FDA-Public Use
  Company Number: US-TEVA-2019-US-1034957

PATIENT
  Sex: Female

DRUGS (2)
  1. PROGESTERONE CAPSULES TEVA [Suspect]
     Active Substance: PROGESTERONE
     Indication: HORMONE REPLACEMENT THERAPY
     Route: 065
     Dates: start: 20190401
  2. ESTROGEN (UNKNOWN MANUFACTURER) [Concomitant]
     Route: 065

REACTIONS (3)
  - Vertigo [Not Recovered/Not Resolved]
  - Product substitution issue [Unknown]
  - Product physical issue [Unknown]

NARRATIVE: CASE EVENT DATE: 201904
